FAERS Safety Report 13008714 (Version 2)
Quarter: 2017Q1

REPORT INFORMATION
  Report Type: Spontaneous
  Country: ES (occurrence: ES)
  Receive Date: 20161208
  Receipt Date: 20170110
  Transmission Date: 20170428
  Serious: Yes (Other)
  Sender: FDA-Public Use
  Company Number: ES-AMGEN-ESPSP2016172205

PATIENT
  Age: 45 Year
  Sex: Male

DRUGS (8)
  1. OMEPRAZOLE. [Concomitant]
     Active Substance: OMEPRAZOLE
     Dosage: 1 DF, ONCE A DAY
  2. INACID [Concomitant]
     Active Substance: INDOMETHACIN
     Indication: ANTIINFLAMMATORY THERAPY
     Dosage: 2 DF, DAILY
  3. ARCOXIA [Concomitant]
     Active Substance: ETORICOXIB
     Dosage: 1 DF, ONCE A DAY (AT NIGHT)
  4. ADIRO [Concomitant]
     Active Substance: ASPIRIN
     Indication: CARDIAC DISORDER
     Dosage: 1 TABLET, 1X/DAY
  5. ENBREL [Suspect]
     Active Substance: ETANERCEPT
     Indication: ANKYLOSING SPONDYLITIS
     Dosage: 50 MG, WEEKLY (ON MONDAYS)
     Route: 058
     Dates: start: 20151204, end: 2016
  6. ARCOXIA [Concomitant]
     Active Substance: ETORICOXIB
     Indication: ANTIINFLAMMATORY THERAPY
     Dosage: 1 DF, 1X/DAY (AT NIGHT)
  7. OMEPRAZOLE. [Concomitant]
     Active Substance: OMEPRAZOLE
     Indication: PROPHYLAXIS
     Dosage: 1 DF, 1X/DAY
  8. BRILIQUE [Concomitant]
     Active Substance: TICAGRELOR
     Indication: CARDIAC DISORDER
     Dosage: 1 TABLET, 2X/DAY

REACTIONS (3)
  - Osteitis [Recovering/Resolving]
  - Dyspnoea [Recovering/Resolving]
  - Infarction [Recovered/Resolved]

NARRATIVE: CASE EVENT DATE: 2016
